FAERS Safety Report 9692664 (Version 1)
Quarter: 2013Q4

REPORT INFORMATION
  Report Type: Spontaneous
  Country: US (occurrence: US)
  Receive Date: 20131118
  Receipt Date: 20131118
  Transmission Date: 20140711
  Serious: Yes (Hospitalization, Other)
  Sender: FDA-Public Use
  Company Number: US-JNJFOC-20131106061

PATIENT
  Age: 37 Year
  Sex: Male

DRUGS (3)
  1. OXYCODONE/PARACETAMOL [Suspect]
     Indication: BACK PAIN
     Route: 065
  2. OPANA [Suspect]
     Indication: PRODUCT USED FOR UNKNOWN INDICATION
     Route: 045
  3. OPIOIDS [Suspect]
     Indication: PAIN MANAGEMENT
     Route: 065

REACTIONS (1)
  - Deafness bilateral [Recovered/Resolved]
